FAERS Safety Report 23513219 (Version 1)
Quarter: 2024Q1

REPORT INFORMATION
  Report Type: Spontaneous
  Country: PL (occurrence: PL)
  Receive Date: 20240212
  Receipt Date: 20240212
  Transmission Date: 20240409
  Serious: Yes (Death)
  Sender: FDA-Public Use
  Company Number: None

PATIENT
  Age: 58 Year
  Sex: Male
  Weight: 77 kg

DRUGS (6)
  1. ACETAMINOPHEN [Suspect]
     Active Substance: ACETAMINOPHEN
     Indication: Pyrexia
     Dosage: DOSE: 1000 MGX1
     Route: 042
     Dates: start: 20240112, end: 20240116
  2. FUROSEMIDE [Concomitant]
     Active Substance: FUROSEMIDE
     Indication: Product used for unknown indication
     Dosage: DOSE: 20 MG X 1?ROA-20045000?ROA-INTRAVENOUS
     Dates: start: 20240112
  3. CLEMASTINE [Concomitant]
     Active Substance: CLEMASTINE
     Indication: Product used for unknown indication
     Dosage: DOSE: 2 MG X 1?ROA-20053000?ROA-ORAL
     Dates: start: 20240112
  4. MORPHIN 10 MG [Concomitant]
     Indication: Product used for unknown indication
     Dosage: DOSE: 10 MG X 2?ROA-SUBCUTANEOUS
     Dates: start: 20240112
  5. IMIPENEM [Concomitant]
     Active Substance: IMIPENEM
     Indication: Product used for unknown indication
     Dosage: DOSE: 1 G X 2?ROA-20045000?ROA-INTRAVENOUS
     Dates: start: 20240112
  6. HYDROKORTISON [Concomitant]
     Indication: Product used for unknown indication
     Dosage: DOSE: 100 MG X 2?ROA-20045000?ROA- INTRAVENOUS
     Dates: start: 20240112

REACTIONS (3)
  - Toxic epidermal necrolysis [Fatal]
  - Cardio-respiratory arrest [Fatal]
  - Cardiac arrest [Fatal]

NARRATIVE: CASE EVENT DATE: 20240116
